FAERS Safety Report 15256895 (Version 11)
Quarter: 2019Q1

REPORT INFORMATION
  Report Type: Report from Study
  Country: CA (occurrence: CA)
  Receive Date: 20180808
  Receipt Date: 20190125
  Transmission Date: 20190417
  Serious: Yes (Death, Hospitalization)
  Sender: FDA-Public Use
  Company Number: PHHY2017CA039914

PATIENT
  Age: 63 Year
  Sex: Female

DRUGS (9)
  1. SANDOSTATIN LAR DEPOT [Suspect]
     Active Substance: OCTREOTIDE ACETATE
     Indication: CARCINOID TUMOUR
     Dosage: 30 MG, QMO (EVERY 4 WEEKS )
     Route: 030
     Dates: start: 20170406
  2. ATORVASTATIN [Concomitant]
     Active Substance: ATORVASTATIN
     Indication: PRODUCT USED FOR UNKNOWN INDICATION
     Dosage: 30 MG, QD
     Route: 065
  3. SANDOSTATIN LAR DEPOT [Suspect]
     Active Substance: OCTREOTIDE ACETATE
     Indication: NEUROENDOCRINE TUMOUR
  4. NIFEDIPINE. [Concomitant]
     Active Substance: NIFEDIPINE
     Indication: PRODUCT USED FOR UNKNOWN INDICATION
     Dosage: 90 MG, QD
     Route: 065
  5. METFORMIN [Suspect]
     Active Substance: METFORMIN HYDROCHLORIDE
     Indication: PRODUCT USED FOR UNKNOWN INDICATION
     Dosage: 500 MG, BID
     Route: 065
  6. SANDOSTATIN [Suspect]
     Active Substance: OCTREOTIDE ACETATE
     Indication: CARCINOID SYNDROME
     Dosage: UNK, ONCE/SINGLE
     Route: 058
     Dates: start: 20170313, end: 20170313
  7. CIPROFLOXACIN. [Concomitant]
     Active Substance: CIPROFLOXACIN
     Indication: PRODUCT USED FOR UNKNOWN INDICATION
     Dosage: 500 MG, QD (FOR 7 DAYS)
     Route: 065
  8. METRONIDAZOL [Concomitant]
     Active Substance: METRONIDAZOLE
     Indication: PRODUCT USED FOR UNKNOWN INDICATION
     Dosage: 500 MG, Q8H (FOR 7 DAYS)
     Route: 065
  9. IRBESARTAN. [Concomitant]
     Active Substance: IRBESARTAN
     Indication: PRODUCT USED FOR UNKNOWN INDICATION
     Dosage: 300 MG, QD
     Route: 065

REACTIONS (31)
  - Blood test abnormal [Unknown]
  - Renal impairment [Unknown]
  - Asthenia [Unknown]
  - Gallbladder disorder [Unknown]
  - Fatigue [Unknown]
  - Injection site pain [Unknown]
  - Device difficult to use [Unknown]
  - Constipation [Unknown]
  - Eating disorder [Unknown]
  - Weight fluctuation [Unknown]
  - Decubitus ulcer [Unknown]
  - Gait disturbance [Unknown]
  - Dehydration [Unknown]
  - Somnolence [Unknown]
  - Respiratory rate decreased [Unknown]
  - Blood glucose increased [Unknown]
  - Electrolyte imbalance [Unknown]
  - Dizziness [Unknown]
  - Abdominal pain upper [Recovering/Resolving]
  - Death [Fatal]
  - Sleep disorder [Recovering/Resolving]
  - Vomiting [Unknown]
  - Injection site reaction [Recovered/Resolved]
  - Cachexia [Unknown]
  - Hair growth abnormal [Unknown]
  - Weight decreased [Unknown]
  - Feeling abnormal [Unknown]
  - Post procedural bile leak [Unknown]
  - Pallor [Unknown]
  - Injection site mass [Recovered/Resolved]
  - Blood glucose decreased [Unknown]

NARRATIVE: CASE EVENT DATE: 2017
